FAERS Safety Report 5746748-8 (Version None)
Quarter: 2008Q2

REPORT INFORMATION
  Report Type: 
  Country: None (occurrence: None)
  Receive Date: 20080520
  Receipt Date: 20070515
  Transmission Date: 20081010
  Serious: Yes (Other)
  Sender: FDA-Public Use
  Company Number: DSA_61463_2007

PATIENT
  Age: 24 Month
  Sex: Female

DRUGS (2)
  1. DIASTAT [Suspect]
     Indication: CONVULSION
     Dosage: 5 MG PRN RECTAL
     Route: 054
     Dates: start: 20061221
  2. TRILEPTAL [Concomitant]

REACTIONS (4)
  - CONVULSION [None]
  - DEVICE LEAKAGE [None]
  - MEDICATION ERROR [None]
  - UNDERDOSE [None]
